FAERS Safety Report 23044943 (Version 2)
Quarter: 2023Q4

REPORT INFORMATION
  Report Type: Spontaneous
  Country: RU (occurrence: RU)
  Receive Date: 20231009
  Receipt Date: 20231122
  Transmission Date: 20240109
  Serious: Yes (Hospitalization, Other)
  Sender: FDA-Public Use
  Company Number: RU-ABBVIE-5441677

PATIENT
  Age: 43 Year
  Sex: Female
  Weight: 63 kg

DRUGS (4)
  1. ZEMPLAR [Suspect]
     Active Substance: PARICALCITOL
     Indication: Hyperparathyroidism secondary
     Dosage: TIME INTERVAL: 0.33333333 WEEKS
     Route: 065
     Dates: start: 20190125, end: 20200129
  2. ZEMPLAR [Suspect]
     Active Substance: PARICALCITOL
     Indication: Hyperparathyroidism secondary
     Dosage: TIME INTERVAL: 0.33333333 WEEKS
     Route: 065
     Dates: start: 20181219, end: 20190125
  3. EPOETIN ALFA [Concomitant]
     Active Substance: ERYTHROPOIETIN
     Indication: Product used for unknown indication
     Dosage: TIME INTERVAL: 0.33333333 WEEKS
     Dates: start: 20140701
  4. Ferric (III) hydroxide sucrose complex [Concomitant]
     Indication: Product used for unknown indication
     Dates: start: 20140701

REACTIONS (7)
  - Arteriovenous graft site necrosis [Recovered/Resolved]
  - Pruritus [Recovered/Resolved]
  - Arteriovenous fistula thrombosis [Unknown]
  - Arteriovenous fistula operation [Recovered/Resolved]
  - Renal cancer [Unknown]
  - Central venous catheterisation [Unknown]
  - Arteriovenous fistula operation [Unknown]

NARRATIVE: CASE EVENT DATE: 20190101
